FAERS Safety Report 18599331 (Version 1)
Quarter: 2020Q4

REPORT INFORMATION
  Report Type: Spontaneous
  Country: US (occurrence: US)
  Receive Date: 20201113
  Receipt Date: 20201113
  Transmission Date: 20210114
  Serious: No
  Sender: FDA-Public Use
  Company Number: None

PATIENT
  Age: 1 Decade
  Sex: Male

DRUGS (3)
  1. HYDROXYCHLOROQUINE [Suspect]
     Active Substance: HYDROXYCHLOROQUINE
     Indication: COVID-19
     Dates: start: 2020
  2. ANAKINRA [Suspect]
     Active Substance: ANAKINRA
     Indication: COVID-19
  3. AZITHROMYCIN ANHYDROUS. [Suspect]
     Active Substance: AZITHROMYCIN ANHYDROUS
     Indication: COVID-19

REACTIONS (12)
  - Acute kidney injury [None]
  - Respiratory failure [None]
  - Prerenal failure [None]
  - Coronary artery aneurysm [None]
  - Cholestasis [None]
  - Septic shock [None]
  - Multiple organ dysfunction syndrome [None]
  - Multisystem inflammatory syndrome in children [None]
  - Lymphopenia [None]
  - Off label use [None]
  - Haemodialysis [None]
  - Renal injury [None]
